FAERS Safety Report 10424845 (Version 2)
Quarter: 2014Q3

REPORT INFORMATION
  Report Type: Spontaneous
  Country: US (occurrence: US)
  Receive Date: 20140902
  Receipt Date: 20140903
  Transmission Date: 20150326
  Serious: Yes (Hospitalization)
  Sender: FDA-Public Use
  Company Number: US-PFIZER INC-2014240220

PATIENT
  Age: 78 Year
  Sex: Female
  Weight: 70.3 kg

DRUGS (4)
  1. GABAPENTIN. [Suspect]
     Active Substance: GABAPENTIN
     Dosage: 600 MG, 1X/DAY
     Route: 048
     Dates: start: 2014, end: 2014
  2. GABAPENTIN. [Suspect]
     Active Substance: GABAPENTIN
     Indication: SURGERY
     Dosage: 300 MG, 1X/DAY
     Route: 048
     Dates: start: 201404
  3. GABAPENTIN. [Suspect]
     Active Substance: GABAPENTIN
     Dosage: 300MG IN MORNING, 300MG IN THE EVENING AND 600MG AT NIGHT
     Route: 048
     Dates: start: 2014, end: 201408
  4. LYRICA [Suspect]
     Active Substance: PREGABALIN
     Indication: SURGERY
     Dosage: 75 MG, 2X/DAY
     Route: 048
     Dates: start: 20140509, end: 20140815

REACTIONS (3)
  - Lumbar vertebral fracture [Unknown]
  - Drug ineffective [Unknown]
  - Tremor [Unknown]

NARRATIVE: CASE EVENT DATE: 2014
